FAERS Safety Report 12688029 (Version 1)
Quarter: 2016Q3

REPORT INFORMATION
  Report Type: Report from Study
  Country: US (occurrence: US)
  Receive Date: 20160825
  Receipt Date: 20160825
  Transmission Date: 20161109
  Serious: Yes (Other)
  Sender: FDA-Public Use
  Company Number: US-ABBVIE-16K-163-1703858-00

PATIENT
  Age: 42 Year
  Sex: Male

DRUGS (1)
  1. HUMIRA [Suspect]
     Active Substance: ADALIMUMAB
     Indication: PRODUCT USED FOR UNKNOWN INDICATION
     Route: 058
     Dates: end: 2014

REACTIONS (6)
  - Abasia [Unknown]
  - Post procedural complication [Unknown]
  - Vocal cord paralysis [Unknown]
  - Procedural dizziness [Unknown]
  - Migraine [Unknown]
  - Arnold-Chiari malformation [Unknown]

NARRATIVE: CASE EVENT DATE: 201408
